FAERS Safety Report 6334857-4 (Version None)
Quarter: 2009Q3

REPORT INFORMATION
  Report Type: 
  Country: None (occurrence: None)
  Receive Date: 20090831
  Receipt Date: 20070525
  Transmission Date: 20100115
  Serious: Yes (Hospitalization, Other)
  Sender: FDA-Public Use
  Company Number: US-ASTRAZENECA-2006UW22380

PATIENT
  Age: 15371 Day
  Sex: Male
  Weight: 93 kg

DRUGS (13)
  1. SEROQUEL [Suspect]
     Indication: BIPOLAR DISORDER
     Dosage: 25-300 MG
     Route: 048
     Dates: start: 20050815
  2. SEROQUEL [Suspect]
     Indication: DEPRESSION
     Dosage: 25-300 MG
     Route: 048
     Dates: start: 20050815
  3. SEROQUEL [Suspect]
     Indication: ANXIETY
     Dosage: 25-300 MG
     Route: 048
     Dates: start: 20050815
  4. SEROQUEL [Suspect]
     Indication: SLEEP DISORDER
     Dosage: 25-300 MG
     Route: 048
     Dates: start: 20050815
  5. RISPERDAL [Concomitant]
     Dates: start: 20060101
  6. METHADONE [Concomitant]
  7. ZOLOFT [Concomitant]
     Indication: DEPRESSION
     Dosage: 25-100 MG
     Dates: start: 20010320
  8. NORVASC [Concomitant]
     Indication: HYPERTENSION
     Dosage: 5-10 MG
     Route: 048
     Dates: start: 20050411
  9. PAXIL [Concomitant]
     Indication: DEPRESSION
     Dosage: 30-80 MG
     Dates: start: 20050815, end: 20061117
  10. PAXIL [Concomitant]
     Indication: ANXIETY
     Dosage: 30-80 MG
     Dates: start: 20050815, end: 20061117
  11. PRILOSEC [Concomitant]
     Indication: GASTROOESOPHAGEAL REFLUX DISEASE
     Route: 048
     Dates: start: 20051104
  12. AMBIEN [Concomitant]
     Indication: SLEEP DISORDER
     Dosage: 10-15 MG
     Dates: start: 20050407
  13. LITHIUM CARBONATE [Concomitant]
     Dosage: 300-900 MG
     Route: 048
     Dates: start: 20051103, end: 20061111

REACTIONS (3)
  - DIABETES MELLITUS [None]
  - POLYNEUROPATHY IDIOPATHIC PROGRESSIVE [None]
  - TYPE 2 DIABETES MELLITUS [None]
